FAERS Safety Report 10206739 (Version 2)
Quarter: 2014Q3

REPORT INFORMATION
  Report Type: Spontaneous
  Country: US (occurrence: US)
  Receive Date: 20140530
  Receipt Date: 20140804
  Transmission Date: 20150326
  Serious: Yes (Life-Threatening, Hospitalization, Disabling, Other)
  Sender: FDA-Public Use
  Company Number: US-ASTRAZENECA-2014SE36434

PATIENT
  Age: 22522 Day
  Sex: Male
  Weight: 96.3 kg

DRUGS (9)
  1. DOCUSATE SODIUM. [Concomitant]
     Active Substance: DOCUSATE SODIUM
     Dosage: 1 CAPSULE 2 TIMES EVERY DAY AT BEDTIME AS NEEDED
     Route: 048
  2. COREG [Concomitant]
     Active Substance: CARVEDILOL
     Dosage: 1 TABLET BY ORAL ROUTE 2 TIMES EVERY DAY WITH FOOD
     Route: 048
     Dates: start: 20140313
  3. ASPIRIN. [Concomitant]
     Active Substance: ASPIRIN
     Route: 048
     Dates: start: 20140224
  4. BRILINTA [Suspect]
     Active Substance: TICAGRELOR
     Indication: CORONARY ARTERY DISEASE
     Route: 048
     Dates: start: 20140224, end: 20140423
  5. LIPITOR [Concomitant]
     Active Substance: ATORVASTATIN CALCIUM
     Route: 048
     Dates: start: 20140313
  6. AMBIEN [Concomitant]
     Active Substance: ZOLPIDEM TARTRATE
     Dosage: ONE AT BEDTIME AS NEEDED
  7. TRIAMCINOLONE ACETONIDE. [Concomitant]
     Active Substance: TRIAMCINOLONE ACETONIDE
     Dosage: 2 TIMES EVERY DAY A THIN LAYER TO THE AFFECTED AREA(S)
     Route: 061
  8. BRILINTA [Suspect]
     Active Substance: TICAGRELOR
     Indication: STENT PLACEMENT
     Route: 048
     Dates: start: 20140224, end: 20140423
  9. LISINOPRIL. [Suspect]
     Active Substance: LISINOPRIL
     Indication: BLOOD PRESSURE ABNORMAL
     Route: 048

REACTIONS (10)
  - Extrasystoles [Unknown]
  - Haemorrhage intracranial [Not Recovered/Not Resolved]
  - Back pain [Unknown]
  - Aspiration [Recovered/Resolved]
  - Subarachnoid haemorrhage [Recovering/Resolving]
  - Disability [Unknown]
  - Coronary artery stenosis [Unknown]
  - Ventricular extrasystoles [Unknown]
  - Vomiting [Recovering/Resolving]
  - Headache [Unknown]

NARRATIVE: CASE EVENT DATE: 20140423
